FAERS Safety Report 6297219-4 (Version None)
Quarter: 2009Q3

REPORT INFORMATION
  Report Type: 
  Country: None (occurrence: None)
  Receive Date: 20090804
  Receipt Date: 20090804
  Transmission Date: 20100115
  Serious: No
  Sender: FDA-Public Use
  Company Number: None

PATIENT
  Age: 76 Year
  Sex: Male
  Weight: 80.7403 kg

DRUGS (1)
  1. TESTOSTERONE [Suspect]
     Indication: ASTHENIA
     Dates: start: 20090708

REACTIONS (7)
  - APPLICATION SITE HAEMATOMA [None]
  - APPLICATION SITE REACTION [None]
  - ERYTHEMA [None]
  - EYELID DISORDER [None]
  - EYELID PAIN [None]
  - SKIN LACERATION [None]
  - SOMNOLENCE [None]
